FAERS Safety Report 7853826-6 (Version None)
Quarter: 2011Q4

REPORT INFORMATION
  Report Type: 
  Country: None (occurrence: None)
  Receive Date: 20111026
  Receipt Date: 20111019
  Transmission Date: 20120403
  Serious: Yes (Other)
  Sender: FDA-Public Use
  Company Number: SE-PFIZER INC-2011252647

PATIENT
  Age: 67 Year
  Sex: Female

DRUGS (3)
  1. DIAZEPAM [Suspect]
     Indication: PROPHYLAXIS
     Dosage: UNK
  2. ALPRAZOLAM [Suspect]
     Dosage: UNK
  3. OXAZEPAM [Suspect]
     Dosage: UNK

REACTIONS (7)
  - DISABILITY [None]
  - BEDRIDDEN [None]
  - VOMITING [None]
  - FEAR [None]
  - GASTROOESOPHAGEAL REFLUX DISEASE [None]
  - ANXIETY [None]
  - PAIN [None]
